FAERS Safety Report 7528047-7 (Version None)
Quarter: 2011Q2

REPORT INFORMATION
  Report Type: 
  Country: None (occurrence: None)
  Receive Date: 20110607
  Receipt Date: 20110602
  Transmission Date: 20111010
  Serious: Yes (Hospitalization)
  Sender: FDA-Public Use
  Company Number: US-BRISTOL-MYERS SQUIBB COMPANY-14866834

PATIENT
  Age: 66 Year
  Sex: Female
  Weight: 63 kg

DRUGS (3)
  1. COUMADIN [Suspect]
     Indication: THROMBOSIS PROPHYLAXIS
     Route: 065
  2. ACTOS [Suspect]
     Indication: DIABETES MELLITUS
     Route: 065
     Dates: end: 20090101
  3. MILK OF MAGNESIA TAB [Concomitant]
     Indication: GASTRIC DISORDER

REACTIONS (5)
  - DYSURIA [None]
  - CONSTIPATION [None]
  - TOOTH LOSS [None]
  - CARDIAC FAILURE CONGESTIVE [None]
  - TEETH BRITTLE [None]
